FAERS Safety Report 4535133-2 (Version None)
Quarter: 2004Q4

REPORT INFORMATION
  Report Type: 
  Country: None (occurrence: None)
  Receive Date: 20041222
  Receipt Date: 20041102
  Transmission Date: 20050328
  Serious: Yes (Death, Life-Threatening, Hospitalization)
  Sender: FDA-Public Use
  Company Number: DE-MERCK-0411DEU00041

PATIENT
  Age: 84 Year
  Sex: Female

DRUGS (4)
  1. VIOXX [Suspect]
     Indication: LOCALISED OSTEOARTHRITIS
     Route: 048
     Dates: start: 20001224, end: 20030426
  2. ALLOPURINOL AND BENZBROMARONE [Concomitant]
     Indication: GOUT
     Route: 065
     Dates: start: 19900101, end: 20030426
  3. GASTROINTESTINAL PREPARATIONS (UNSPECIFIED) [Concomitant]
     Indication: HYPERCHLORHYDRIA
     Route: 065
  4. GASTROINTESTINAL PREPARATIONS (UNSPECIFIED) [Concomitant]
     Indication: IRRITABLE BOWEL SYNDROME
     Route: 065

REACTIONS (1)
  - CEREBROVASCULAR ACCIDENT [None]
